FAERS Safety Report 10652899 (Version 1)
Quarter: 2014Q4

REPORT INFORMATION
  Report Type: Report from Study
  Country: JP (occurrence: JP)
  Receive Date: 20141215
  Receipt Date: 20141215
  Transmission Date: 20150529
  Serious: Yes (Other)
  Sender: FDA-Public Use
  Company Number: JP-MYLANLABS-2014M1013942

PATIENT

DRUGS (8)
  1. LENALIDOMIDE [Suspect]
     Active Substance: LENALIDOMIDE
     Dosage: TWO TREATMENTS OF LENALIDOMIDE 10-25 MG/D FOR 3 OUT OF 4 WEEKS
     Route: 065
  2. DEXAMETHASONE. [Suspect]
     Active Substance: DEXAMETHASONE
     Indication: PLASMA CELL MYELOMA
  3. BORTEZOMIB [Suspect]
     Active Substance: BORTEZOMIB
     Indication: PLASMA CELL MYELOMA
     Dosage: FOUR TREATMENTS OF BORTEZOMIB 0.7-1.3 MG/M2/D WEEKLY IV INFUSION FOR 4 OUT OF 5 WEEKS
     Route: 041
  4. LENALIDOMIDE [Suspect]
     Active Substance: LENALIDOMIDE
     Dosage: SIX TREATMENTS OF LENALIDOMIDE 5 MG/2D OR 5-10 MG/D FOR 3 OUT OF 4 WEEKS
     Route: 065
  5. ASPIRIN                            /00002701/ [Concomitant]
     Active Substance: ASPIRIN
     Indication: THROMBOSIS PROPHYLAXIS
     Route: 065
  6. DEXAMETHASONE. [Suspect]
     Active Substance: DEXAMETHASONE
     Dosage: FOUR TREATMENTS OF DEXAMETHASONE 40 MG/D WEEKLY FOR 4 OUT OF 5 WEEKS
     Route: 065
  7. DEXAMETHASONE. [Suspect]
     Active Substance: DEXAMETHASONE
     Dosage: TWO TREATMENTS OF DEXAMETHASONE 40 MG/D WEEKLY FOR 4 OUT OF 4 WEEKS
     Route: 065
  8. LENALIDOMIDE [Suspect]
     Active Substance: LENALIDOMIDE
     Indication: PLASMA CELL MYELOMA

REACTIONS (4)
  - Anaemia [Unknown]
  - Neuropathy peripheral [Unknown]
  - Neutropenia [Unknown]
  - Rash [Unknown]
